FAERS Safety Report 14166184 (Version 1)
Quarter: 2017Q4

REPORT INFORMATION
  Report Type: Spontaneous
  Country: US (occurrence: None)
  Receive Date: 20171106
  Receipt Date: 20171106
  Transmission Date: 20180321
  Serious: No
  Sender: FDA-Public Use
  Company Number: None

PATIENT
  Age: 79 Year
  Sex: Female

DRUGS (1)
  1. SIMPONI [Suspect]
     Active Substance: GOLIMUMAB
     Indication: INTERVERTEBRAL DISC PROTRUSION
     Dosage: 100MG Q28D SUBQ
     Route: 058
     Dates: start: 20161218

REACTIONS (3)
  - Dizziness [None]
  - Drug ineffective [None]
  - Vertigo [None]

NARRATIVE: CASE EVENT DATE: 20171003
